FAERS Safety Report 18495115 (Version 3)
Quarter: 2023Q2

REPORT INFORMATION
  Report Type: Spontaneous
  Country: US (occurrence: US)
  Receive Date: 20201112
  Receipt Date: 20230510
  Transmission Date: 20230721
  Serious: No
  Sender: FDA-Public Use
  Company Number: US-BIOGEN-2020BI00825045

PATIENT
  Age: 17 Year
  Sex: Male

DRUGS (2)
  1. TYSABRI [Suspect]
     Active Substance: NATALIZUMAB
     Indication: Multiple sclerosis
     Dosage: INFUSED OVER 1 HOUR
     Route: 050
     Dates: start: 20190903
  2. TYSABRI [Suspect]
     Active Substance: NATALIZUMAB
     Route: 050

REACTIONS (3)
  - Prescribed underdose [Unknown]
  - Off label use [Recovered/Resolved]
  - Lethargy [Recovered/Resolved]

NARRATIVE: CASE EVENT DATE: 20190903
